FAERS Safety Report 10771237 (Version 1)
Quarter: 2015Q1

REPORT INFORMATION
  Report Type: Report from Study
  Country: US (occurrence: US)
  Receive Date: 20150206
  Receipt Date: 20150206
  Transmission Date: 20150721
  Serious: Yes (Hospitalization, Other)
  Sender: FDA-Public Use
  Company Number: US-BAYER-2014-080797

PATIENT
  Age: 78 Year
  Sex: Female

DRUGS (26)
  1. ADEMPAS [Suspect]
     Active Substance: RIOCIGUAT
     Indication: PULMONARY ARTERIAL HYPERTENSION
     Dosage: 0.5 MG, TID
     Route: 048
     Dates: start: 20140807
  2. TRACLEER [Suspect]
     Active Substance: BOSENTAN\BOSENTAN MONOHYDRATE
     Indication: PULMONARY ARTERIAL HYPERTENSION
     Dosage: 125 MG, BID
     Route: 048
     Dates: start: 20120910
  3. TRACLEER [Suspect]
     Active Substance: BOSENTAN\BOSENTAN MONOHYDRATE
     Indication: PULMONARY ARTERIAL HYPERTENSION
     Dosage: 125 MG, BID
     Route: 048
  4. VENTAVIS [Suspect]
     Active Substance: ILOPROST
     Indication: PULMONARY ARTERIAL HYPERTENSION
     Dosage: 5 MCG, 4-5X/DAY
     Dates: start: 20140501
  5. SIMVASTATIN. [Concomitant]
     Active Substance: SIMVASTATIN
     Dosage: UNK
  6. POTASSIUM [Concomitant]
     Active Substance: POTASSIUM
  7. VENTAVIS [Suspect]
     Active Substance: ILOPROST
     Indication: CARDIAC FAILURE CONGESTIVE
     Dosage: 5 MCG, 4-5X/DAY
     Route: 055
  8. VENTAVIS [Suspect]
     Active Substance: ILOPROST
     Indication: PULMONARY ARTERIAL HYPERTENSION
     Dosage: UNK
  9. TRACLEER [Suspect]
     Active Substance: BOSENTAN\BOSENTAN MONOHYDRATE
     Indication: CARDIAC FAILURE CONGESTIVE
     Dosage: 125 MG, BID
     Route: 048
  10. ATROVENT [Concomitant]
     Active Substance: IPRATROPIUM BROMIDE
     Dosage: UNK
     Dates: start: 20131204
  11. VENTAVIS [Suspect]
     Active Substance: ILOPROST
     Indication: PULMONARY ARTERIAL HYPERTENSION
     Dosage: 5 MCG, 4-5X/DAY
     Route: 055
  12. COUMADIN [Concomitant]
     Active Substance: WARFARIN SODIUM
     Dosage: UNK
  13. METOPROLOL [Concomitant]
     Active Substance: METOPROLOL
     Dosage: UNK
  14. LASIX [Concomitant]
     Active Substance: FUROSEMIDE
     Dosage: 40 MG, BID
     Dates: start: 201406
  15. PULMICORT TURBUHALER [Concomitant]
     Active Substance: BUDESONIDE
     Dosage: UNK
     Dates: start: 20130205
  16. VENTAVIS [Suspect]
     Active Substance: ILOPROST
     Indication: PULMONARY ARTERIAL HYPERTENSION
     Dosage: 2.5 MCG, 4-5X/DAY
     Route: 055
     Dates: start: 20140623
  17. VENTAVIS [Suspect]
     Active Substance: ILOPROST
     Indication: PULMONARY HYPERTENSION
     Dosage: 5 ?G, 6-9 TIMES DAILY
     Route: 055
  18. PREVACID [Concomitant]
     Active Substance: LANSOPRAZOLE
     Dosage: UNK
  19. SPIRIVA [Concomitant]
     Active Substance: TIOTROPIUM BROMIDE MONOHYDRATE
     Dosage: UNK
     Dates: start: 20130503
  20. VENTAVIS [Suspect]
     Active Substance: ILOPROST
     Indication: PULMONARY ARTERIAL HYPERTENSION
     Dosage: 5 MCG, 4-5X/DAY
     Route: 055
  21. LASIX [Concomitant]
     Active Substance: FUROSEMIDE
     Dosage: 40 MG IN MORNING, 20 MG IN AFTERNOON
  22. PRISTIQ EXTENDED RELEASE [Concomitant]
     Active Substance: DESVENLAFAXINE SUCCINATE
     Dosage: UNK
  23. VENTAVIS [Suspect]
     Active Substance: ILOPROST
     Indication: PULMONARY ARTERIAL HYPERTENSION
     Dosage: 5 MCG, 5-6X/DAY
     Route: 055
     Dates: start: 20140501, end: 2014
  24. LASIX [Concomitant]
     Active Substance: FUROSEMIDE
     Dosage: UNK
     Dates: start: 20140509
  25. NIFEDIPINE XL [Concomitant]
     Active Substance: NIFEDIPINE
     Dosage: UNK
  26. FENOFIBRATE. [Concomitant]
     Active Substance: FENOFIBRATE
     Dosage: UNK

REACTIONS (20)
  - Fluid overload [Unknown]
  - Asthenia [Recovered/Resolved]
  - Pain in jaw [Unknown]
  - Localised oedema [Unknown]
  - Pulmonary oedema [Unknown]
  - Oedema peripheral [Recovering/Resolving]
  - Chronic obstructive pulmonary disease [Recovering/Resolving]
  - Cardiac failure [Unknown]
  - Dyspnoea exertional [Unknown]
  - Weight increased [Unknown]
  - Bronchitis [Unknown]
  - Transfusion [Unknown]
  - Dyspnoea [None]
  - Gastrointestinal haemorrhage [Recovering/Resolving]
  - Swelling [Recovered/Resolved]
  - Headache [Recovered/Resolved]
  - Drug dose omission [None]
  - Atrial fibrillation [Unknown]
  - Anaemia [Recovering/Resolving]
  - Haemoglobin decreased [None]

NARRATIVE: CASE EVENT DATE: 20140822
